FAERS Safety Report 10751314 (Version 1)
Quarter: 2015Q1

REPORT INFORMATION
  Report Type: Spontaneous
  Country: FR (occurrence: FR)
  Receive Date: 20150130
  Receipt Date: 20150130
  Transmission Date: 20150721
  Serious: Yes (Other)
  Sender: FDA-Public Use
  Company Number: FR-BAYER-2015-010731

PATIENT
  Age: 64 Year
  Sex: Male

DRUGS (4)
  1. CIPROFLOXACIN. [Suspect]
     Active Substance: CIPROFLOXACIN
     Dosage: 400 MG, BID
     Route: 042
     Dates: start: 20141111, end: 20141117
  2. IMUREL [Suspect]
     Active Substance: AZATHIOPRINE SODIUM
     Dosage: 50 MG, QD
     Dates: start: 201405
  3. PROGRAF [Suspect]
     Active Substance: TACROLIMUS\TACROLIMUS ANHYDROUS
     Dosage: 4 MG, BID
     Route: 048
     Dates: start: 201111
  4. CIFLOX [Suspect]
     Active Substance: CIPROFLOXACIN
     Indication: PYELONEPHRITIS
     Dosage: UNK
     Route: 048
     Dates: start: 20141118, end: 20141205

REACTIONS (2)
  - Visual acuity reduced [Not Recovered/Not Resolved]
  - Macular ischaemia [Not Recovered/Not Resolved]

NARRATIVE: CASE EVENT DATE: 201412
